FAERS Safety Report 17051672 (Version 1)
Quarter: 2019Q4

REPORT INFORMATION
  Report Type: Report from Study
  Country: CA (occurrence: CA)
  Receive Date: 20191120
  Receipt Date: 20191120
  Transmission Date: 20200122
  Serious: Yes (Hospitalization)
  Sender: FDA-Public Use
  Company Number: CA-ROCHE-1932996

PATIENT
  Age: 74 Year
  Sex: Female

DRUGS (11)
  1. BISOPROLOL [Concomitant]
     Active Substance: BISOPROLOL
  2. ESBRIET [Suspect]
     Active Substance: PIRFENIDONE
     Route: 048
     Dates: start: 20170504
  3. ESBRIET [Suspect]
     Active Substance: PIRFENIDONE
     Dosage: 534 - 534 - 801 MG/DAY
     Route: 048
     Dates: start: 2017, end: 201708
  4. PANTOLOC [PANTOPRAZOLE] [Concomitant]
     Active Substance: PANTOPRAZOLE SODIUM
  5. ESBRIET [Suspect]
     Active Substance: PIRFENIDONE
     Indication: IDIOPATHIC PULMONARY FIBROSIS
     Route: 048
     Dates: start: 20170420
  6. ELIQUIS [Concomitant]
     Active Substance: APIXABAN
  7. ESBRIET [Suspect]
     Active Substance: PIRFENIDONE
     Route: 048
     Dates: start: 20170427
  8. ESBRIET [Suspect]
     Active Substance: PIRFENIDONE
     Route: 048
     Dates: start: 201706
  9. ESBRIET [Suspect]
     Active Substance: PIRFENIDONE
     Route: 048
     Dates: start: 20170901
  10. SYMBICORT [Concomitant]
     Active Substance: BUDESONIDE\FORMOTEROL FUMARATE DIHYDRATE
  11. LIPITOR [Concomitant]
     Active Substance: ATORVASTATIN CALCIUM

REACTIONS (14)
  - Frequent bowel movements [Unknown]
  - Vomiting [Recovered/Resolved]
  - Nausea [Unknown]
  - Feeding disorder [Recovering/Resolving]
  - Hyponatraemia [Unknown]
  - Faeces soft [Not Recovered/Not Resolved]
  - Respiratory disorder [Recovered/Resolved]
  - Liver function test increased [Recovering/Resolving]
  - Back injury [Unknown]
  - Malaise [Unknown]
  - Diarrhoea [Unknown]
  - Nausea [Recovered/Resolved]
  - Abdominal pain upper [Not Recovered/Not Resolved]
  - Diarrhoea [Recovered/Resolved]

NARRATIVE: CASE EVENT DATE: 201705
